FAERS Safety Report 8788837 (Version 2)
Quarter: 2012Q4

REPORT INFORMATION
  Report Type: 
  Country: BR (occurrence: BR)
  Receive Date: 20120915
  Receipt Date: 20120928
  Transmission Date: 20130627
  Serious: Yes (Other)
  Sender: FDA-Public Use
  Company Number: BR-ABBOTT-12P-020-0978615-00

PATIENT
  Sex: Female

DRUGS (5)
  1. DEPAKENE [Suspect]
     Indication: EPILEPSY
  2. TYLENOL [Concomitant]
     Indication: RHINITIS ALLERGIC
  3. TYLENOL [Concomitant]
     Indication: BRONCHITIS
  4. AMOXICILLIN [Concomitant]
     Indication: RHINITIS ALLERGIC
  5. AMOXICILLIN [Concomitant]
     Indication: BRONCHITIS

REACTIONS (6)
  - Convulsion [Recovered/Resolved]
  - Vertigo [Unknown]
  - Visual impairment [Unknown]
  - Hearing impaired [Unknown]
  - Disorientation [Unknown]
  - Lower limb fracture [Unknown]
